FAERS Safety Report 8066597-8 (Version None)
Quarter: 2012Q1

REPORT INFORMATION
  Report Type: 
  Country: None (occurrence: None)
  Receive Date: 20120124
  Receipt Date: 20120117
  Transmission Date: 20120608
  Serious: Yes (Death, Life-Threatening, Hospitalization, Other)
  Sender: FDA-Public Use
  Company Number: PHEH2011US05994

PATIENT
  Sex: Female
  Weight: 63.039 kg

DRUGS (16)
  1. SANDOSTATIN LAR [Suspect]
     Dosage: MONTHLY DOSE OF 20 MG
     Dates: start: 20110714
  2. MORPHINE [Concomitant]
     Dosage: 30 MG ONCE EVERY 12 HRS AS NEEDED
  3. MEGACE [Concomitant]
     Dosage: 10 CC ONCE A DAY
  4. PANCREASE [Concomitant]
     Dosage: 16800 U, UNK
  5. AFINITOR [Suspect]
     Indication: PANCREATIC NEUROENDOCRINE TUMOUR METASTATIC
     Dosage: 10 MG, QD
     Route: 048
     Dates: start: 20110608
  6. SANDOSTATIN LAR [Suspect]
     Dosage: MONTHLY DOSE OF 20 MG
     Dates: start: 20110811
  7. SANDOSTATIN LAR [Suspect]
     Indication: PANCREATIC NEUROENDOCRINE TUMOUR METASTATIC
     Dosage: MONTHLY DOSE OF 20 MG
     Dates: start: 20110519
  8. SANDOSTATIN LAR [Suspect]
     Dosage: MONTHLY DOSE OF 20 MG
     Dates: start: 20110616
  9. METFORMIN HYDROCHLORIDE [Concomitant]
  10. SIMVASTATIN [Concomitant]
  11. SANDOSTATIN LAR [Suspect]
     Dosage: MONTHLY DOSE OF 20 MG
     Dates: start: 20110907
  12. AMPHETAMINES [Suspect]
  13. MS CONTIN [Concomitant]
     Dosage: 60 MG, Q8H
  14. OMEPRAZOLE [Concomitant]
     Dosage: 40 MG, QD
  15. DILAUDID [Concomitant]
  16. MULTI-VITAMINS [Concomitant]

REACTIONS (60)
  - DECREASED APPETITE [None]
  - NECROSIS [None]
  - HEARING IMPAIRED [None]
  - NEOPLASM PROGRESSION [None]
  - LIVER DISORDER [None]
  - SPINAL DISORDER [None]
  - DIABETES MELLITUS INADEQUATE CONTROL [None]
  - MIDDLE INSOMNIA [None]
  - PANCREATIC DUCT OBSTRUCTION [None]
  - ANAEMIA [None]
  - GENERALISED OEDEMA [None]
  - MALAISE [None]
  - DRUG INEFFECTIVE [None]
  - PANCREATIC ENLARGEMENT [None]
  - GASTROINTESTINAL HAEMORRHAGE [None]
  - GASTRIC MUCOSAL LESION [None]
  - FAECES DISCOLOURED [None]
  - ATELECTASIS [None]
  - BREATH SOUNDS ABNORMAL [None]
  - BODY TEMPERATURE INCREASED [None]
  - FATIGUE [None]
  - LOCALISED OEDEMA [None]
  - PANCREATIC MASS [None]
  - ABDOMINAL DISCOMFORT [None]
  - BILE DUCT OBSTRUCTION [None]
  - METASTASES TO BONE [None]
  - PLEURAL EFFUSION [None]
  - LUNG NEOPLASM [None]
  - SOMNOLENCE [None]
  - BLOOD PRESSURE INCREASED [None]
  - EARLY SATIETY [None]
  - TREATMENT FAILURE [None]
  - HALLUCINATION, VISUAL [None]
  - ASCITES [None]
  - ABDOMINAL DISTENSION [None]
  - METASTASES TO LIVER [None]
  - HEPATIC LESION [None]
  - INFECTION [None]
  - HEART RATE INCREASED [None]
  - CHOLANGITIS [None]
  - OCULAR ICTERUS [None]
  - PALLOR [None]
  - CACHEXIA [None]
  - THROMBOSIS [None]
  - ABDOMINAL PAIN UPPER [None]
  - DYSPEPSIA [None]
  - ABDOMINAL TENDERNESS [None]
  - METASTASES TO LUNG [None]
  - URINE COLOUR ABNORMAL [None]
  - MALNUTRITION [None]
  - ASTHENIA [None]
  - NEOPLASM MALIGNANT [None]
  - METASTASES TO SMALL INTESTINE [None]
  - DYSPHAGIA [None]
  - DIARRHOEA [None]
  - CHEST PAIN [None]
  - ABDOMINAL HERNIA [None]
  - JAUNDICE [None]
  - LYMPHADENOPATHY [None]
  - WEIGHT DECREASED [None]
